FAERS Safety Report 9743369 (Version 2)
Quarter: 2013Q4

REPORT INFORMATION
  Report Type: Spontaneous
  Country: US (occurrence: US)
  Receive Date: 20131210
  Receipt Date: 20131210
  Transmission Date: 20140711
  Serious: Yes (Other)
  Sender: FDA-Public Use
  Company Number: US-TEVA-379752USA

PATIENT
  Age: 39 Year
  Sex: Female

DRUGS (7)
  1. PARAGARD 380A [Suspect]
     Indication: CONTRACEPTION
     Route: 015
     Dates: start: 200905
  2. PRAVASTATIN SODIUM [Concomitant]
  3. LISINOPRIL [Concomitant]
  4. KEPPRA [Concomitant]
  5. NOVOLOG [Concomitant]
  6. LANTUS [Concomitant]
  7. PRENATAL PLUS [Concomitant]

REACTIONS (2)
  - Abortion spontaneous [Unknown]
  - Drug ineffective [Unknown]
